FAERS Safety Report 19409024 (Version 1)
Quarter: 2021Q2

REPORT INFORMATION
  Report Type: Spontaneous
  Country: KE (occurrence: KE)
  Receive Date: 20210613
  Receipt Date: 20210613
  Transmission Date: 20210717
  Serious: Yes (Other)
  Sender: FDA-Public Use
  Company Number: KE-BAXTER-2021BAX015691

PATIENT

DRUGS (1)
  1. BUPICAN [Suspect]
     Active Substance: BUPIVACAINE HYDROCHLORIDE
     Indication: SPINAL ANAESTHESIA
     Dosage: BUPIVACAINE INJECTION SPINAL 0.5% + GLUCOSE 8% (5MG+80MG/ML), 4ML AMPOULE ? CLARIS (BUPICAN HEAVY) B
     Route: 037

REACTIONS (1)
  - Drug ineffective [Unknown]
